FAERS Safety Report 12608590 (Version 2)
Quarter: 2017Q1

REPORT INFORMATION
  Report Type: Spontaneous
  Country: US (occurrence: US)
  Receive Date: 20160729
  Receipt Date: 20170203
  Transmission Date: 20170428
  Serious: Yes (Death, Hospitalization)
  Sender: FDA-Public Use
  Company Number: US-B.I. PHARMACEUTICALS,INC./RIDGEFIELD-2016-BI-49947BI

PATIENT
  Age: 78 Year
  Sex: Male
  Weight: 83.91 kg

DRUGS (2)
  1. PRADAXA [Suspect]
     Active Substance: DABIGATRAN ETEXILATE MESYLATE
     Route: 048
     Dates: start: 20110320, end: 20110403
  2. PRADAXA [Suspect]
     Active Substance: DABIGATRAN ETEXILATE MESYLATE
     Indication: ATRIAL FIBRILLATION
     Route: 048
     Dates: start: 20101101

REACTIONS (3)
  - Gastrointestinal arteriovenous malformation [Fatal]
  - Gastrointestinal haemorrhage [Fatal]
  - Haemorrhage [Fatal]

NARRATIVE: CASE EVENT DATE: 20110403
